FAERS Safety Report 6181459-9 (Version None)
Quarter: 2009Q2

REPORT INFORMATION
  Report Type: 
  Country: None (occurrence: None)
  Receive Date: 20090501
  Receipt Date: 20090309
  Transmission Date: 20091009
  Serious: No
  Sender: FDA-Public Use
  Company Number: 2009001028

PATIENT
  Age: 72 Year
  Sex: Female
  Weight: 106.5953 kg

DRUGS (1)
  1. TREANDA [Suspect]
     Dosage: (140 MG, EVERY 28 DAYS) , INTRAVENOUS
     Route: 042
     Dates: start: 20081218

REACTIONS (2)
  - PRURITUS [None]
  - TRIGGER FINGER [None]
